FAERS Safety Report 4724525-4 (Version None)
Quarter: 2005Q3

REPORT INFORMATION
  Report Type: 
  Country: None (occurrence: None)
  Receive Date: 20050721
  Receipt Date: 20050601
  Transmission Date: 20060218
  Serious: Yes (Other)
  Sender: FDA-Public Use
  Company Number: S05-CAN-02453-01

PATIENT
  Age: 22 Year
  Sex: Female

DRUGS (4)
  1. CELEXA [Suspect]
     Dosage: 20 MG QD
  2. BIAXIN [Suspect]
     Dosage: 500 MG QD
  3. IBUPROFEN [Suspect]
     Dosage: 1600 MG QD
  4. TYLENOL [Suspect]
     Dosage: 2000 MG QD

REACTIONS (6)
  - CHILLS [None]
  - DRUG INTERACTION [None]
  - NAUSEA [None]
  - PYREXIA [None]
  - TREMOR [None]
  - VOMITING [None]
